FAERS Safety Report 5200076-8 (Version None)
Quarter: 2007Q1

REPORT INFORMATION
  Report Type: 
  Country: None (occurrence: None)
  Receive Date: 20070105
  Receipt Date: 20070103
  Transmission Date: 20070707
  Serious: Yes (Other)
  Sender: FDA-Public Use
  Company Number: US-GLAXOSMITHKLINE-A0631746A

PATIENT
  Age: 54 Year
  Sex: Female
  Weight: 107.3 kg

DRUGS (14)
  1. LOTRONEX [Suspect]
     Indication: IRRITABLE BOWEL SYNDROME
     Dosage: 1MG PER DAY
     Route: 048
     Dates: start: 20060601, end: 20061215
  2. CIPROFLOXACIN [Suspect]
     Indication: STAPHYLOCOCCAL INFECTION
     Route: 065
  3. CLINDAMYCIN [Suspect]
     Indication: STAPHYLOCOCCAL INFECTION
     Route: 065
     Dates: start: 20061101, end: 20061101
  4. LIQUIBID D [Concomitant]
  5. AVANDIA [Concomitant]
  6. METFORMIN HCL [Concomitant]
  7. CRESTOR [Concomitant]
  8. PROTONIX [Concomitant]
  9. ESTRADIOL [Concomitant]
  10. LEXAPRO [Concomitant]
  11. CENTRUM SILVER [Concomitant]
  12. ASPIRIN [Concomitant]
  13. IMITREX [Concomitant]
  14. MYCOLOG [Concomitant]

REACTIONS (4)
  - CLOSTRIDIAL INFECTION [None]
  - DIARRHOEA [None]
  - STAPHYLOCOCCAL INFECTION [None]
  - WEIGHT INCREASED [None]
